FAERS Safety Report 7223257-0 (Version None)
Quarter: 2011Q1

REPORT INFORMATION
  Report Type: 
  Country: None (occurrence: None)
  Receive Date: 20110112
  Receipt Date: 20100330
  Transmission Date: 20110831
  Serious: No
  Sender: FDA-Public Use
  Company Number: US-ALLERGAN-1004198US

PATIENT
  Sex: Female

DRUGS (4)
  1. RESTASIS [Suspect]
     Indication: DRY EYE
     Dosage: UNK
     Route: 047
  2. VITAMIN B [Concomitant]
  3. LUTEIN [Concomitant]
  4. CALCIUM [Concomitant]

REACTIONS (2)
  - EYE IRRITATION [None]
  - FOREIGN BODY [None]
